FAERS Safety Report 5961315-9 (Version None)
Quarter: 2008Q4

REPORT INFORMATION
  Report Type: 
  Country: None (occurrence: None)
  Receive Date: 20081121
  Receipt Date: 20081113
  Transmission Date: 20090506
  Serious: Yes (Other)
  Sender: FDA-Public Use
  Company Number: US-AMGEN-QUU317286

PATIENT
  Sex: Male
  Weight: 96.7 kg

DRUGS (1)
  1. ENBREL [Suspect]
     Indication: PSORIATIC ARTHROPATHY
     Route: 058
     Dates: start: 20000901

REACTIONS (7)
  - HYPERTENSION [None]
  - NASOPHARYNGITIS [None]
  - PYREXIA [None]
  - REFLUX OESOPHAGITIS [None]
  - RHEUMATOID ARTHRITIS [None]
  - SPUTUM DISCOLOURED [None]
  - TUBERCULIN TEST POSITIVE [None]
